FAERS Safety Report 9959544 (Version 2)
Quarter: 2014Q1

REPORT INFORMATION
  Report Type: Report from Study
  Country: US (occurrence: US)
  Receive Date: 20140305
  Receipt Date: 20140305
  Transmission Date: 20141002
  Serious: No
  Sender: FDA-Public Use
  Company Number: US-ABBVIE-13P-163-1107149-00

PATIENT
  Age: 41 Year
  Sex: Female
  Weight: 79 kg

DRUGS (7)
  1. HUMIRA [Suspect]
     Indication: CROHN^S DISEASE
     Dosage: 1ST LOADING DOSE
     Route: 058
     Dates: start: 200908
  2. HUMIRA [Suspect]
     Dosage: 2ND LOADING DOSE
     Route: 058
     Dates: start: 2009, end: 2009
  3. HUMIRA [Suspect]
     Route: 058
     Dates: start: 2009, end: 200910
  4. FLAGYL [Concomitant]
     Indication: PRODUCT USED FOR UNKNOWN INDICATION
  5. CIPRO [Concomitant]
     Indication: PRODUCT USED FOR UNKNOWN INDICATION
  6. CIMZIA [Concomitant]
     Indication: CROHN^S DISEASE
     Dates: start: 2009
  7. MERCAPTOPURINE [Concomitant]
     Indication: PRODUCT USED FOR UNKNOWN INDICATION

REACTIONS (1)
  - Hepatic enzyme increased [Recovered/Resolved]
